FAERS Safety Report 13144474 (Version 1)
Quarter: 2017Q1

REPORT INFORMATION
  Report Type: Spontaneous
  Country: US (occurrence: US)
  Receive Date: 20170124
  Receipt Date: 20170124
  Transmission Date: 20170428
  Serious: No
  Sender: FDA-Public Use
  Company Number: US-TEVA-655623USA

PATIENT
  Age: 68 Year
  Sex: Female
  Weight: 85.35 kg

DRUGS (1)
  1. CYPROHEPTADINE. [Suspect]
     Active Substance: CYPROHEPTADINE
     Indication: MIGRAINE
     Dosage: 8 MILLIGRAM DAILY;
     Route: 065

REACTIONS (3)
  - Dry mouth [Unknown]
  - Product use issue [Unknown]
  - Headache [Unknown]
